FAERS Safety Report 9250840 (Version 1)
Quarter: 2013Q1

REPORT INFORMATION
  Report Type: Spontaneous
  Country: US (occurrence: None)
  Receive Date: 20130305
  Receipt Date: 20130305
  Transmission Date: 20140127
  Serious: Yes (Other)
  Sender: FDA-Public Use
  Company Number: 163-21880-12100250

PATIENT
  Age: 60 Year
  Sex: Female

DRUGS (9)
  1. REVLIMID (LENALIDOMIDE) (15 MILLIGRAM, CAPSULES) [Suspect]
     Indication: PLASMA CELL MYELOMA
     Dosage: 21 IN 28 D
     Route: 048
     Dates: start: 20120827
  2. COMPAZINE (PROCHLORPERAZINE EDISYLATE) [Suspect]
  3. DEXAMETHASONE [Suspect]
  4. TRAMADOL (TRAMADOL) [Suspect]
  5. PREVACID (LANSOPRAZOLE) [Suspect]
  6. CYCLOBENZAPRINE (CYCLOBENZAPRINE) [Suspect]
  7. VITAMINS [Suspect]
  8. AMBIEN (ZOLPIDEM TARTRATE) [Suspect]
  9. ACYCLOVIR (ACICLOVIR) (ACICLOVIR) [Suspect]

REACTIONS (1)
  - Deep vein thrombosis [None]
